FAERS Safety Report 9147143 (Version 3)
Quarter: 2013Q4

REPORT INFORMATION
  Report Type: Report from Study
  Country: BR (occurrence: BR)
  Receive Date: 20130307
  Receipt Date: 20131017
  Transmission Date: 20140711
  Serious: Yes (Hospitalization, Other)
  Sender: FDA-Public Use
  Company Number: BR-ROCHE-757360

PATIENT
  Age: 60 Year
  Sex: Female
  Weight: 61 kg

DRUGS (16)
  1. MABTHERA [Suspect]
     Indication: RHEUMATOID ARTHRITIS
     Dosage: PATIENT RECEIVED LAST RITUXIMAB CYCLE ON 10/SEP/2013 AND 25/SEP/2013
     Route: 042
  2. MABTHERA [Suspect]
     Route: 042
     Dates: start: 20100328, end: 20100413
  3. PROCIMAX [Suspect]
     Indication: PRODUCT USED FOR UNKNOWN INDICATION
     Route: 065
  4. PRELONE [Concomitant]
     Indication: HYPERTENSION
     Route: 065
  5. ANGIPRESS CD [Concomitant]
     Indication: HYPERTENSION
     Route: 065
  6. SELOZOK [Concomitant]
  7. CORTICORTEN [Concomitant]
     Route: 065
  8. RIVOTRIL [Concomitant]
     Route: 065
  9. LIMBITROL [Concomitant]
     Route: 065
  10. DORFLEX [Concomitant]
     Indication: HEADACHE
     Dosage: FREQ: PRN
     Route: 065
  11. CEFALIV [Concomitant]
     Indication: HEADACHE
     Dosage: FREQ: PRN.
     Route: 065
  12. DIOVAN [Concomitant]
     Route: 065
  13. DIOVAN [Concomitant]
     Route: 065
  14. METHOTREXATE [Concomitant]
     Route: 065
  15. VIMOVO [Concomitant]
  16. FOLIC ACID [Concomitant]

REACTIONS (15)
  - Osteoarthritis [Recovering/Resolving]
  - Thrombosis [Not Recovered/Not Resolved]
  - Meniscus injury [Recovered/Resolved]
  - Arthropathy [Not Recovered/Not Resolved]
  - Rheumatoid arthritis [Not Recovered/Not Resolved]
  - Sinusitis [Unknown]
  - Leprosy [Recovered/Resolved]
  - Headache [Not Recovered/Not Resolved]
  - Back pain [Not Recovered/Not Resolved]
  - Pain [Not Recovered/Not Resolved]
  - Herpes simplex [Recovered/Resolved]
  - Arthralgia [Unknown]
  - Fall [Unknown]
  - Osteoarthritis [Recovered/Resolved]
  - Osteoarthritis [Unknown]
